FAERS Safety Report 18521184 (Version 1)
Quarter: 2020Q4

REPORT INFORMATION
  Report Type: Spontaneous
  Country: US (occurrence: US)
  Receive Date: 20201119
  Receipt Date: 20201119
  Transmission Date: 20210114
  Serious: No
  Sender: FDA-Public Use
  Company Number: US-PFIZER INC-2020455406

PATIENT
  Age: 54 Year
  Sex: Male
  Weight: 126.98 kg

DRUGS (1)
  1. SUTENT [Suspect]
     Active Substance: SUNITINIB MALATE
     Indication: RENAL CANCER
     Dosage: 50 MG, CYCLIC (DAILY 14 DAYS, 7 DAYS REST)
     Route: 048
     Dates: start: 202009

REACTIONS (6)
  - Blood pressure increased [Unknown]
  - Fatigue [Unknown]
  - Rash [Unknown]
  - Urticaria [Unknown]
  - Stomatitis [Unknown]
  - Blister [Unknown]

NARRATIVE: CASE EVENT DATE: 2020
